FAERS Safety Report 16219219 (Version 2)
Quarter: 2019Q2

REPORT INFORMATION
  Report Type: Report from Study
  Country: US (occurrence: US)
  Receive Date: 20190419
  Receipt Date: 20190422
  Transmission Date: 20190711
  Serious: Yes (Hospitalization, Other)
  Sender: FDA-Public Use
  Company Number: US-GILEAD-2019-0400217

PATIENT
  Age: 79 Year
  Sex: Male

DRUGS (1)
  1. IDELALISIB [Suspect]
     Active Substance: IDELALISIB
     Indication: MARGINAL ZONE LYMPHOMA
     Dosage: 150 MG, BID
     Route: 048
     Dates: start: 20170701, end: 20190322

REACTIONS (5)
  - Myocardial infarction [Unknown]
  - Blood count abnormal [Recovering/Resolving]
  - Carpal tunnel syndrome [Recovered/Resolved]
  - White blood cell count decreased [Recovering/Resolving]
  - Platelet count decreased [Recovering/Resolving]

NARRATIVE: CASE EVENT DATE: 201903
